FAERS Safety Report 19677229 (Version 1)
Quarter: 2021Q3

REPORT INFORMATION
  Report Type: Spontaneous
  Country: CN (occurrence: CN)
  Receive Date: 20210809
  Receipt Date: 20210809
  Transmission Date: 20211014
  Serious: Yes (Other)
  Sender: FDA-Public Use
  Company Number: CN-UCBSA-2021009202

PATIENT
  Age: 34 Year
  Sex: Female
  Weight: 62.5 kg

DRUGS (2)
  1. CIMZIA [Suspect]
     Active Substance: CERTOLIZUMAB PEGOL
     Indication: ANKYLOSING SPONDYLITIS
     Dosage: 200 MILLIGRAM, EV 2 WEEKS(QOW)
     Route: 058
     Dates: start: 20210129, end: 202101
  2. CIMZIA [Suspect]
     Active Substance: CERTOLIZUMAB PEGOL
     Indication: OFF LABEL USE

REACTIONS (5)
  - Maternal exposure during pregnancy [Unknown]
  - Inability to afford medication [Unknown]
  - Therapy interrupted [Unknown]
  - Off label use [Unknown]
  - Uterine scar [Unknown]

NARRATIVE: CASE EVENT DATE: 2021
